FAERS Safety Report 25815080 (Version 1)
Quarter: 2025Q3

REPORT INFORMATION
  Report Type: Spontaneous
  Country: JP (occurrence: JP)
  Receive Date: 20250918
  Receipt Date: 20250918
  Transmission Date: 20251021
  Serious: Yes (Hospitalization, Other)
  Sender: BRISTOL-MYERS SQUIBB COMPANY
  Company Number: JP-BRISTOL-MYERS SQUIBB COMPANY-2025-125414

PATIENT
  Age: 82 Year
  Sex: Male

DRUGS (9)
  1. REBLOZYL [Suspect]
     Active Substance: LUSPATERCEPT-AAMT
     Indication: Myelodysplastic syndrome with multilineage dysplasia
  2. REBLOZYL [Suspect]
     Active Substance: LUSPATERCEPT-AAMT
  3. REBLOZYL [Suspect]
     Active Substance: LUSPATERCEPT-AAMT
  4. REBLOZYL [Suspect]
     Active Substance: LUSPATERCEPT-AAMT
  5. REBLOZYL [Suspect]
     Active Substance: LUSPATERCEPT-AAMT
  6. REBLOZYL [Suspect]
     Active Substance: LUSPATERCEPT-AAMT
  7. REBLOZYL [Suspect]
     Active Substance: LUSPATERCEPT-AAMT
  8. REBLOZYL [Suspect]
     Active Substance: LUSPATERCEPT-AAMT
  9. REBLOZYL [Suspect]
     Active Substance: LUSPATERCEPT-AAMT

REACTIONS (1)
  - Diverticulum intestinal haemorrhagic [Unknown]

NARRATIVE: CASE EVENT DATE: 20250501
